FAERS Safety Report 19690505 (Version 1)
Quarter: 2021Q3

REPORT INFORMATION
  Report Type: Spontaneous
  Country: US (occurrence: US)
  Receive Date: 20210812
  Receipt Date: 20210812
  Transmission Date: 20211014
  Serious: Yes (Hospitalization)
  Sender: FDA-Public Use
  Company Number: None

PATIENT
  Age: 79 Year
  Sex: Female
  Weight: 63.5 kg

DRUGS (1)
  1. PALBOCICLIB (PD?0332991) [Suspect]
     Active Substance: PALBOCICLIB
     Dates: end: 20210804

REACTIONS (3)
  - Blood alkaline phosphatase increased [None]
  - Hepatic enzyme increased [None]
  - Toxicity to various agents [None]

NARRATIVE: CASE EVENT DATE: 20210804
